FAERS Safety Report 8886622 (Version 1)
Quarter: 2012Q4

REPORT INFORMATION
  Report Type: Report from Study
  Country: JP (occurrence: JP)
  Receive Date: 20121105
  Receipt Date: 20121105
  Transmission Date: 20130627
  Serious: Yes (Hospitalization)
  Sender: FDA-Public Use
  Company Number: PHHO2012JP015278

PATIENT
  Age: 47 Year
  Sex: Male
  Weight: 61 kg

DRUGS (8)
  1. ALISKIREN [Suspect]
     Indication: HYPERTENSION
     Dosage: UNK
     Route: 048
     Dates: start: 20120713
  2. RENIVACE [Concomitant]
     Indication: HYPERTENSION
     Dosage: 2.5 mg, UNK
     Route: 048
  3. SIGMART [Concomitant]
     Dosage: 15 mg, UNK
     Route: 048
     Dates: start: 20110713
  4. BAYASPIRIN [Concomitant]
     Dosage: 100 mg, UNK
     Route: 048
  5. ARTIST [Concomitant]
     Indication: HYPERTENSION
  6. CRESTOR [Concomitant]
     Indication: LIPIDS ABNORMAL
     Dosage: 5 mg, UNK
  7. NITROPEN [Concomitant]
     Indication: GASTRITIS PROPHYLAXIS
     Dosage: 15 mg, UNK
     Route: 048
  8. CONIEL [Concomitant]
     Dosage: 8 mg, UNK
     Route: 048
     Dates: start: 20121017

REACTIONS (1)
  - Angina unstable [Recovering/Resolving]
